FAERS Safety Report 18962222 (Version 2)
Quarter: 2021Q2

REPORT INFORMATION
  Report Type: Spontaneous
  Country: BR (occurrence: BR)
  Receive Date: 20210302
  Receipt Date: 20210412
  Transmission Date: 20210717
  Serious: Yes (Other)
  Sender: FDA-Public Use
  Company Number: BR-AMGEN-BRASP2018057321

PATIENT
  Age: 66 Year
  Sex: Female

DRUGS (2)
  1. ENBREL [Suspect]
     Active Substance: ETANERCEPT
     Indication: PRODUCT USED FOR UNKNOWN INDICATION
     Dosage: UNK
     Route: 065
     Dates: start: 20180126
  2. ENBREL [Suspect]
     Active Substance: ETANERCEPT
     Dosage: UNK
     Route: 065
     Dates: start: 201810

REACTIONS (8)
  - Akinesia [Unknown]
  - Cataract [Unknown]
  - Fall [Unknown]
  - Therapeutic product effect incomplete [Unknown]
  - Nerve injury [Unknown]
  - Neuropathic muscular atrophy [Unknown]
  - Visual impairment [Unknown]
  - Chondropathy [Unknown]
